FAERS Safety Report 14483055 (Version 1)
Quarter: 2018Q1

REPORT INFORMATION
  Report Type: Spontaneous
  Country: US (occurrence: US)
  Receive Date: 20180202
  Receipt Date: 20180202
  Transmission Date: 20180509
  Serious: Yes (Disabling)
  Sender: FDA-Public Use
  Company Number: None

PATIENT
  Age: 79 Year
  Sex: Female

DRUGS (1)
  1. RESTASIS [Suspect]
     Active Substance: CYCLOSPORINE
     Indication: DRY EYE
     Route: 047
     Dates: start: 20171006, end: 20180118

REACTIONS (5)
  - Aphonia [None]
  - Lacrimation increased [None]
  - Vocal cord inflammation [None]
  - Dysphonia [None]
  - Therapy cessation [None]

NARRATIVE: CASE EVENT DATE: 20171006
